FAERS Safety Report 5705789-7 (Version None)
Quarter: 2008Q2

REPORT INFORMATION
  Report Type: 
  Country: None (occurrence: None)
  Receive Date: 20080415
  Receipt Date: 20080411
  Transmission Date: 20081010
  Serious: Yes (Life-Threatening, Hospitalization)
  Sender: FDA-Public Use
  Company Number: JP-ASTRAZENECA-2008AP01545

PATIENT
  Age: 54 Year
  Sex: Male
  Weight: 64 kg

DRUGS (5)
  1. CRESTOR [Suspect]
     Indication: HYPERCHOLESTEROLAEMIA
     Route: 048
     Dates: start: 20071229, end: 20080202
  2. CYANOCOBALAMIN [Concomitant]
     Indication: DIABETIC NEUROPATHY
     Route: 048
     Dates: end: 20080202
  3. NOVORAPID [Concomitant]
     Indication: DIABETES MELLITUS
     Dosage: 300 IU/3ML, 9 (MORNING), 9 (NOON), 8 (EVENING)
     Route: 058
     Dates: start: 20080125
  4. LEVEMIR300 [Concomitant]
     Indication: DIABETES MELLITUS
     Dosage: BEFORE GOING TO BED
     Route: 058
     Dates: start: 20071228
  5. CALBLOCK [Concomitant]
     Indication: HYPERTENSION
     Route: 048
     Dates: start: 20080201

REACTIONS (4)
  - BLOOD CREATINE PHOSPHOKINASE INCREASED [None]
  - DIABETIC KETOACIDOSIS [None]
  - ENTERITIS INFECTIOUS [None]
  - RENAL FAILURE ACUTE [None]
